FAERS Safety Report 14877623 (Version 3)
Quarter: 2018Q4

REPORT INFORMATION
  Report Type: Spontaneous
  Country: US (occurrence: US)
  Receive Date: 20180510
  Receipt Date: 20181224
  Transmission Date: 20190204
  Serious: No
  Sender: FDA-Public Use
  Company Number: US-ASTRAZENECA-2018SE27157

PATIENT
  Age: 19514 Day
  Sex: Female

DRUGS (1)
  1. FASENRA [Suspect]
     Active Substance: BENRALIZUMAB
     Indication: ASTHMA
     Dosage: 30 MG ONCE EVERY 4 WEEKS FOR THE FIRST 3 MONTHS, THEN ONCE EVERY 8 WEEKS THEREAFTER
     Route: 058
     Dates: start: 20180220

REACTIONS (5)
  - Malaise [Unknown]
  - Headache [Recovered/Resolved]
  - Cough [Unknown]
  - Wheezing [Unknown]
  - Hypotension [Unknown]

NARRATIVE: CASE EVENT DATE: 20180220
